FAERS Safety Report 7132764-0 (Version None)
Quarter: 2010Q4

REPORT INFORMATION
  Report Type: 
  Country: None (occurrence: None)
  Receive Date: 20101202
  Receipt Date: 20101120
  Transmission Date: 20110411
  Serious: No
  Sender: FDA-Public Use
  Company Number: US-PFIZER INC-2010132096

PATIENT
  Sex: Female
  Weight: 104 kg

DRUGS (5)
  1. CHANTIX [Suspect]
     Indication: SMOKING CESSATION THERAPY
     Dosage: 0.5 MG, DAILY
     Route: 048
     Dates: start: 20101010, end: 20100101
  2. CHANTIX [Suspect]
     Dosage: 1 MG, 2X/DAY
     Route: 048
     Dates: start: 20100101
  3. MUCINEX [Concomitant]
     Indication: COUGH
     Dosage: UNK
     Route: 048
  4. AMBIEN [Concomitant]
     Indication: INSOMNIA
     Dosage: UNK
  5. PALIPERIDONE [Concomitant]
     Indication: SCHIZOAFFECTIVE DISORDER
     Dosage: 9 MG, 1X/DAY

REACTIONS (4)
  - HEADACHE [None]
  - HYPERSOMNIA [None]
  - INSOMNIA [None]
  - MALAISE [None]
